FAERS Safety Report 14246261 (Version 1)
Quarter: 2017Q4

REPORT INFORMATION
  Report Type: Report from Study
  Country: None (occurrence: US)
  Receive Date: 20171204
  Receipt Date: 20171204
  Transmission Date: 20180321
  Serious: Yes (Other)
  Sender: FDA-Public Use
  Company Number: US-ABBVIE-16K-163-1663135-00

PATIENT
  Age: 54 Year
  Sex: Female

DRUGS (9)
  1. HUMIRA [Suspect]
     Active Substance: ADALIMUMAB
     Route: 058
     Dates: start: 20170330, end: 201706
  2. HUMIRA [Suspect]
     Active Substance: ADALIMUMAB
     Indication: RHEUMATOID ARTHRITIS
     Route: 058
     Dates: start: 2014, end: 20170223
  3. HUMIRA [Suspect]
     Active Substance: ADALIMUMAB
     Route: 058
     Dates: start: 201707
  4. METHOTREXATE. [Concomitant]
     Active Substance: METHOTREXATE
     Indication: PRODUCT USED FOR UNKNOWN INDICATION
  5. XARELTO [Concomitant]
     Active Substance: RIVAROXABAN
     Indication: PROPHYLAXIS
  6. EPINEPHRINE PEN [Concomitant]
     Indication: ANAPHYLAXIS PROPHYLAXIS
  7. AMLODIPINE [Concomitant]
     Active Substance: AMLODIPINE BESYLATE
     Indication: HYPERTENSION
  8. LOSARTAN. [Concomitant]
     Active Substance: LOSARTAN
     Indication: HYPERTENSION
  9. MORPHINE [Concomitant]
     Active Substance: MORPHINE
     Indication: PRODUCT USED FOR UNKNOWN INDICATION

REACTIONS (21)
  - Cyst [Recovered/Resolved]
  - Constipation [Not Recovered/Not Resolved]
  - Exostosis [Recovered/Resolved]
  - Rotator cuff syndrome [Recovered/Resolved]
  - Osteoarthritis [Recovered/Resolved]
  - Injection site pruritus [Not Recovered/Not Resolved]
  - Small intestinal obstruction [Not Recovered/Not Resolved]
  - Short-bowel syndrome [Unknown]
  - Injection site swelling [Recovering/Resolving]
  - Abdominal pain upper [Not Recovered/Not Resolved]
  - Injection site erythema [Not Recovered/Not Resolved]
  - Osteoarthritis [Recovering/Resolving]
  - Joint dislocation [Recovered/Resolved]
  - Inappropriate schedule of drug administration [Unknown]
  - Osteoarthritis [Recovering/Resolving]
  - Spinal fusion surgery [Unknown]
  - Malabsorption [Unknown]
  - Abdominal distension [Not Recovered/Not Resolved]
  - Injection site pain [Recovering/Resolving]
  - Sinusitis [Recovering/Resolving]
  - Rheumatoid arthritis [Recovering/Resolving]

NARRATIVE: CASE EVENT DATE: 2015
